FAERS Safety Report 6460773-3 (Version None)
Quarter: 2009Q4

REPORT INFORMATION
  Report Type: 
  Country: None (occurrence: None)
  Receive Date: 20091130
  Receipt Date: 20091119
  Transmission Date: 20100525
  Serious: Yes (Hospitalization, Other)
  Sender: FDA-Public Use
  Company Number: US-PFIZER INC-2009230393

PATIENT
  Sex: Male

DRUGS (1)
  1. SUTENT [Suspect]
     Dosage: 50 MG, DAILY, FOR 28 DAYS EVERY 42 DAYS
     Dates: start: 20090611

REACTIONS (2)
  - HEART RATE INCREASED [None]
  - HYPERTENSION [None]
